FAERS Safety Report 6828380-8 (Version None)
Quarter: 2010Q3

REPORT INFORMATION
  Report Type: 
  Country: None (occurrence: None)
  Receive Date: 20100708
  Receipt Date: 20100708
  Transmission Date: 20110219
  Serious: Yes (Other)
  Sender: FDA-Public Use
  Company Number: None

PATIENT
  Age: 63 Year
  Sex: Female

DRUGS (16)
  1. XELODA [Suspect]
     Indication: BREAST CANCER
     Dosage: 1800 MG BID PO
     Route: 048
     Dates: start: 20100625, end: 20100704
  2. COMPAZINE [Concomitant]
  3. LEVOTHYROXINE [Concomitant]
  4. SINGULAIR [Concomitant]
  5. ASPIRIN [Concomitant]
  6. COQ-10 [Concomitant]
  7. DULCOLAX [Concomitant]
  8. KLOR-CON [Concomitant]
  9. HYDROCODONE BITARTRATE AND ACETAMINOPHEN [Concomitant]
  10. IBUPROFEN [Concomitant]
  11. OMEPRAZOLE [Concomitant]
  12. DILTIAZEM CD [Concomitant]
  13. MULTI-VITAMIN [Concomitant]
  14. LISINOPRIL AND HYDROCHLOROTHIAZIDE [Concomitant]
  15. ADVAIR DISKUS 100/50 [Concomitant]
  16. LYRICA [Concomitant]

REACTIONS (4)
  - FEELING HOT [None]
  - HYPERHIDROSIS [None]
  - LIP SWELLING [None]
  - OROPHARYNGEAL PAIN [None]
